FAERS Safety Report 10410790 (Version 2)
Quarter: 2014Q3

REPORT INFORMATION
  Report Type: Spontaneous
  Country: DK (occurrence: DK)
  Receive Date: 20140826
  Receipt Date: 20140905
  Transmission Date: 20150326
  Serious: Yes (Other)
  Sender: FDA-Public Use
  Company Number: CHPA2014DK010981

PATIENT
  Age: 51 Year
  Sex: Female

DRUGS (1)
  1. NICOTINELL COATED GUM LIQUIRICE [Suspect]
     Active Substance: NICOTINE
     Indication: SMOKING CESSATION THERAPY
     Dosage: 10 TO 12 DF, DAILY
     Dates: start: 201202

REACTIONS (4)
  - Drug withdrawal syndrome [Not Recovered/Not Resolved]
  - Incorrect drug administration duration [Unknown]
  - Hiccups [Not Recovered/Not Resolved]
  - Drug dependence [Not Recovered/Not Resolved]

NARRATIVE: CASE EVENT DATE: 201202
